FAERS Safety Report 15009811 (Version 1)
Quarter: 2018Q2

REPORT INFORMATION
  Report Type: Spontaneous
  Country: US (occurrence: US)
  Receive Date: 20180614
  Receipt Date: 20180614
  Transmission Date: 20180711
  Serious: Yes (Other)
  Sender: FDA-Public Use
  Company Number: US-ACCORD-068094

PATIENT
  Age: 49 Year
  Sex: Female

DRUGS (5)
  1. FLUOROURACIL. [Suspect]
     Active Substance: FLUOROURACIL
     Indication: METASTASES TO OVARY
     Dates: start: 201612
  2. DOXORUBICIN [Concomitant]
     Active Substance: DOXORUBICIN
     Indication: GASTRIC CANCER
  3. FOLINIC ACID [Suspect]
     Active Substance: LEUCOVORIN
     Indication: METASTASES TO OVARY
     Dates: start: 201612
  4. MITOMYCIN. [Concomitant]
     Active Substance: MITOMYCIN
     Indication: GASTRIC CANCER
     Route: 033
  5. OXALIPLATIN. [Suspect]
     Active Substance: OXALIPLATIN
     Indication: METASTASES TO OVARY
     Dates: start: 201612

REACTIONS (2)
  - Neuropathy peripheral [Unknown]
  - Off label use [Unknown]
